FAERS Safety Report 25504354 (Version 1)
Quarter: 2025Q2

REPORT INFORMATION
  Report Type: Spontaneous
  Country: US (occurrence: None)
  Receive Date: 20250630
  Receipt Date: 20250630
  Transmission Date: 20250717
  Serious: No
  Sender: FDA-CTU
  Company Number: None

PATIENT
  Age: 45 Year

DRUGS (8)
  1. CABOMETYX [Suspect]
     Active Substance: CABOZANTINIB S-MALATE
     Indication: Renal cancer
     Dosage: 40 MG DAILY ORAL ?
     Route: 048
     Dates: start: 20250605
  2. FERROUS SULFATE [Concomitant]
     Active Substance: FERROUS SULFATE
  3. ACETAMINOPHEN [Concomitant]
     Active Substance: ACETAMINOPHEN
  4. FLUTICASONE [Concomitant]
     Active Substance: FLUTICASONE
  5. LORAZEPAM [Concomitant]
     Active Substance: LORAZEPAM
  6. TAMSULOSIN [Concomitant]
     Active Substance: TAMSULOSIN
  7. DOCUSATE SODIUM\SENNOSIDES [Concomitant]
     Active Substance: DOCUSATE SODIUM\SENNOSIDES
  8. FEXOFENADINE [Concomitant]
     Active Substance: FEXOFENADINE HYDROCHLORIDE

REACTIONS (1)
  - Rash [None]

NARRATIVE: CASE EVENT DATE: 20250629
